FAERS Safety Report 10255636 (Version 2)
Quarter: 2014Q3

REPORT INFORMATION
  Report Type: Spontaneous
  Country: US (occurrence: None)
  Receive Date: 20140620
  Receipt Date: 20140702
  Transmission Date: 20150326
  Serious: Yes (Hospitalization)
  Sender: FDA-Public Use
  Company Number: SYM-2014-21885

PATIENT
  Age: 66 Year
  Sex: Male
  Weight: 106.1 kg

DRUGS (18)
  1. LORAZEPAM (LORAZEPAM) [Suspect]
     Active Substance: LORAZEPAM
     Indication: NAUSEA
     Dosage: 0.5MG, AS NEEDED, ORAL
     Route: 048
     Dates: start: 20130906
  2. DOCUSATE W/SENNOSIDE A+B (SENNOSIDE A+B, DOCUSATE) [Concomitant]
  3. ASPIRIN. [Concomitant]
     Active Substance: ASPIRIN
  4. LORAZEPAM (LORAZEPAM) [Suspect]
     Active Substance: LORAZEPAM
     Indication: ANXIETY
     Dosage: 0.5MG, AS NEEDED, ORAL
     Route: 048
     Dates: start: 20130906
  5. FOLIC ACID (FOLIC ACID) [Concomitant]
     Active Substance: FOLIC ACID
  6. VARENICLINE TARTRATE [Suspect]
     Active Substance: VARENICLINE TARTRATE
     Indication: EX-TOBACCO USER
     Dosage: 0.5MG, 1 IN 1 D, ORAL
     Route: 048
     Dates: start: 20130926, end: 20130928
  7. LEKOVIT CA [Suspect]
     Active Substance: CALCIUM CARBONATE\CHOLECALCIFEROL
     Indication: ROUTINE HEALTH MAINTENANCE
     Dosage: 1200MG, 1 IN 1 D, ORAL
     Route: 048
     Dates: start: 20130708
  8. PEMETREXED [Suspect]
     Active Substance: PEMETREXED
     Indication: CHEMOTHERAPY
     Dosage: 500 MG/M2, EVERY 3 WEEKS, INTRAVENOUS
     Route: 042
     Dates: start: 20130906
  9. DEXAMETHASONE SODIUM PHOSPHATE (DEXAMETHASONE SODIUM PHOSPHATE) [Concomitant]
     Active Substance: DEXAMETHASONE SODIUM PHOSPHATE
  10. LOSARTAN POTASSIUM (LOSARTAN POTASSIUM) [Concomitant]
     Active Substance: LOSARTAN POTASSIUM
  11. CYANOCOBALAMIN (CYANOCOBALAMIN) [Concomitant]
  12. PLAVIX [Concomitant]
     Active Substance: CLOPIDOGREL BISULFATE
  13. VARENICLINE TARTRATE (VARENICLINE TARTRATE) [Suspect]
     Active Substance: VARENICLINE TARTRATE
     Indication: EX-TOBACCO USER
     Dates: start: 20131219, end: 20140227
  14. ROSUVASTATIN CALCIUM (ROSUVASTATIN CALCIUM) [Concomitant]
  15. LORAZEPAM (LORAZEPAM) [Suspect]
     Active Substance: LORAZEPAM
     Indication: SLEEP DISORDER
     Dosage: 0.5MG, AS NEEDED, ORAL
     Route: 048
     Dates: start: 20130906
  16. CARBOPLATIN (CARBOPLATIN) [Suspect]
     Active Substance: CARBOPLATIN
     Indication: CHEMOTHERAPY
     Route: 042
     Dates: start: 20130906, end: 20131108
  17. ONDANSETRON HYDROCHLORIDE (ONDASETRON HYDROCHLORIDE) [Concomitant]
  18. HYDROCHLOROTHIAZIDE (HYDROCHLOROTHIAZIDE) [Concomitant]
     Active Substance: HYDROCHLOROTHIAZIDE

REACTIONS (2)
  - Hypercalcaemia [None]
  - Confusional state [None]

NARRATIVE: CASE EVENT DATE: 20140228
